FAERS Safety Report 5026162-3 (Version None)
Quarter: 2006Q2

REPORT INFORMATION
  Report Type: 
  Country: None (occurrence: None)
  Receive Date: 20060608
  Receipt Date: 20060531
  Transmission Date: 20061013
  Serious: Yes (Other)
  Sender: FDA-Public Use
  Company Number: 2006070108

PATIENT
  Sex: Female
  Weight: 71.6683 kg

DRUGS (15)
  1. NASALCROM [Suspect]
     Indication: SEASONAL ALLERGY
     Dosage: 1 SQUIRT/EACH NOSTRIL PRN, NASAL
     Route: 045
     Dates: start: 20020101, end: 20060531
  2. INSULIN LISPRO (INSULIN LISPRO) [Concomitant]
  3. HYPROMELLOSE/NAPHAZOLINE HCL (HYPROMELLOSE, NAPHAZOLINE HYDROCHLORIDE) [Concomitant]
  4. TOCOPHEROL (TOCOPHEROL) [Concomitant]
  5. MULTIVITAMINS (ASCORBIC ACID, ERGOCALCIFEROL, FOLIC ACID, NICOTINAMIDE [Concomitant]
  6. SUPER B VITAMIN B COMPLEX (VITAMIN B NOS) [Concomitant]
  7. COUGH AND COLD PREPARATIONS (COUGH AND COLD PREPARATIONS) [Concomitant]
  8. THYROID TAB [Concomitant]
  9. LORATADINE [Concomitant]
  10. ASPIRIN [Concomitant]
  11. GINKGO BILOBA (GINKGO BILOBA) [Concomitant]
  12. CALCIUM CITRATE (CALCIUM CITRATE) [Concomitant]
  13. ASCORBIC ACID [Concomitant]
  14. INSULIN HUMAN INJECTION, ISOPHANE (INSULIN HUMAN INJECTION, ISOPHANE) [Concomitant]
  15. MAGNESIUM (MAGNESIUM) [Concomitant]

REACTIONS (2)
  - EYE HAEMORRHAGE [None]
  - VITREOUS DETACHMENT [None]
